FAERS Safety Report 12474646 (Version 1)
Quarter: 2016Q2

REPORT INFORMATION
  Report Type: Other
  Country: US (occurrence: US)
  Receive Date: 20160617
  Receipt Date: 20160617
  Transmission Date: 20160815
  Serious: Yes (Hospitalization)
  Sender: FDA-Public Use
  Company Number: US-LUPIN PHARMACEUTICALS INC.-2016-02598

PATIENT
  Age: 47 Year
  Sex: Female

DRUGS (1)
  1. METFORMIN [Suspect]
     Active Substance: METFORMIN HYDROCHLORIDE
     Indication: TYPE 2 DIABETES MELLITUS
     Route: 065

REACTIONS (8)
  - Hypomagnesaemia [Recovering/Resolving]
  - Hypoaesthesia [Recovering/Resolving]
  - Hypocalcaemia [Recovering/Resolving]
  - Hypokalaemia [Recovering/Resolving]
  - Paraesthesia [Recovering/Resolving]
  - Incorrect dose administered [Unknown]
  - Vomiting [Recovering/Resolving]
  - Diarrhoea [Recovering/Resolving]
